FAERS Safety Report 6622728-5 (Version None)
Quarter: 2010Q1

REPORT INFORMATION
  Report Type: 
  Country: None (occurrence: None)
  Receive Date: 20100310
  Receipt Date: 20100219
  Transmission Date: 20100710
  Serious: No
  Sender: FDA-Public Use
  Company Number: US-BAYER-201014552NA

PATIENT
  Age: 66 Year
  Sex: Female

DRUGS (2)
  1. MIRENA [Suspect]
     Indication: POSTMENOPAUSAL HAEMORRHAGE
     Route: 015
     Dates: start: 20080101
  2. PROVERA [Concomitant]
     Indication: POSTMENOPAUSAL HAEMORRHAGE
     Route: 065

REACTIONS (3)
  - BLOOD PRESSURE FLUCTUATION [None]
  - VAGINAL HAEMORRHAGE [None]
  - WEIGHT INCREASED [None]
